FAERS Safety Report 11309869 (Version 4)
Quarter: 2015Q4

REPORT INFORMATION
  Report Type: Spontaneous
  Country: US (occurrence: US)
  Receive Date: 20150724
  Receipt Date: 20151020
  Transmission Date: 20160304
  Serious: Yes (Death, Hospitalization, Other)
  Sender: FDA-Public Use
  Company Number: US-INCYTE CORPORATION-2015IN003524

PATIENT
  Age: 73 Year
  Sex: Male

DRUGS (9)
  1. PREDNISONE. [Concomitant]
     Active Substance: PREDNISONE
     Dosage: 20 MG, QD
     Route: 048
  2. JAKAFI [Suspect]
     Active Substance: RUXOLITINIB
     Indication: MYELOFIBROSIS
     Dosage: 5 MG, BID
     Route: 048
     Dates: start: 20150407
  3. JAKAFI [Suspect]
     Active Substance: RUXOLITINIB
     Indication: OFF LABEL USE
  4. JAKAFI [Suspect]
     Active Substance: RUXOLITINIB
     Indication: MYELODYSPLASTIC SYNDROME
  5. COUMADIN [Concomitant]
     Active Substance: WARFARIN SODIUM
     Dosage: 5 MG, QD (OR AS DIRECTED BY COUMADIN CLINIC)
     Route: 048
  6. OXYCODONE HYDROCHLORIDE. [Concomitant]
     Active Substance: OXYCODONE HYDROCHLORIDE
     Dosage: 5 MG, PRN
     Route: 048
  7. CALCIUM +VIT D [Concomitant]
     Active Substance: CALCIUM\VITAMIN D
     Dosage: 250/100MG UNIT PER TABLET
     Route: 048
  8. DILTIAZEM [Concomitant]
     Active Substance: DILTIAZEM
     Dosage: 240 MG, QD
     Route: 048
  9. MULTIVITAMIN                       /00097801/ [Concomitant]
     Active Substance: VITAMINS
     Dosage: 1 DF, QD
     Route: 048

REACTIONS (19)
  - Acute myeloid leukaemia [Fatal]
  - Myelofibrosis [Fatal]
  - Disorientation [Unknown]
  - Haemoptysis [Unknown]
  - Dyspnoea [Unknown]
  - Platelet count decreased [Unknown]
  - Off label use [Unknown]
  - Mental impairment [Unknown]
  - Muscular weakness [Unknown]
  - Confusional state [Unknown]
  - Hemiparesis [Unknown]
  - Anxiety [Unknown]
  - Brain oedema [Unknown]
  - Vomiting [Unknown]
  - Paraesthesia [Unknown]
  - Abdominal pain [Unknown]
  - Extramedullary haemopoiesis [Fatal]
  - Back pain [Unknown]
  - Anaemia [Unknown]

NARRATIVE: CASE EVENT DATE: 201507
